FAERS Safety Report 7761321-8 (Version None)
Quarter: 2011Q3

REPORT INFORMATION
  Report Type: 
  Country: None (occurrence: None)
  Receive Date: 20110920
  Receipt Date: 20110915
  Transmission Date: 20111222
  Serious: Yes (Hospitalization, Other)
  Sender: FDA-Public Use
  Company Number: US-PFIZER INC-2010161445

PATIENT
  Sex: Female

DRUGS (5)
  1. PRILOSEC [Concomitant]
     Dosage: 20 MG, 1X/DAY
     Route: 048
     Dates: start: 20090601, end: 20090607
  2. DILANTIN [Suspect]
     Dosage: 300 MG, 1X/DAY
     Route: 048
     Dates: start: 20090511, end: 20090601
  3. DILANTIN-125 [Suspect]
     Dosage: 400 MG, UNK
     Dates: start: 20090101, end: 20090101
  4. DILANTIN [Suspect]
     Dosage: 400 MG, 1X/DAY
     Route: 048
     Dates: start: 20090601
  5. PREVACID [Concomitant]
     Dosage: 30 MG, UNK
     Route: 048
     Dates: start: 20090601

REACTIONS (1)
  - STEVENS-JOHNSON SYNDROME [None]
